FAERS Safety Report 8121405-1 (Version None)
Quarter: 2012Q1

REPORT INFORMATION
  Report Type: 
  Country: None (occurrence: None)
  Receive Date: 20120208
  Receipt Date: 20120201
  Transmission Date: 20120608
  Serious: No
  Sender: FDA-Public Use
  Company Number: US-PFIZER INC-2012030654

PATIENT
  Sex: Female

DRUGS (2)
  1. LO/OVRAL-28 [Suspect]
     Indication: CONTRACEPTION
     Dosage: UNK
     Dates: start: 20110701, end: 20111101
  2. MELOXICAM [Concomitant]

REACTIONS (3)
  - DRUG INEFFECTIVE [None]
  - UNINTENDED PREGNANCY [None]
  - MENSTRUATION IRREGULAR [None]
